FAERS Safety Report 24012152 (Version 4)
Quarter: 2024Q4

REPORT INFORMATION
  Report Type: Spontaneous
  Country: US (occurrence: US)
  Receive Date: 20240625
  Receipt Date: 20241118
  Transmission Date: 20250114
  Serious: No
  Sender: SANOFI AVENTIS
  Company Number: US-SA-SAC20240621000112

PATIENT
  Age: 69 Year
  Sex: Female

DRUGS (1)
  1. DUPIXENT [Suspect]
     Active Substance: DUPILUMAB
     Indication: Dermatitis atopic
     Dosage: 300 MG, QOW
     Route: 058
     Dates: start: 20201005

REACTIONS (16)
  - Pruritus [Unknown]
  - Sleep disorder due to a general medical condition [Unknown]
  - Skin haemorrhage [Unknown]
  - Skin weeping [Unknown]
  - Fall [Unknown]
  - Skin fissures [Unknown]
  - Dry skin [Unknown]
  - Skin exfoliation [Unknown]
  - Scar [Unknown]
  - Condition aggravated [Unknown]
  - Swelling [Unknown]
  - Cyst [Unknown]
  - Haemorrhage [Unknown]
  - Eczema [Unknown]
  - Dry eye [Unknown]
  - Therapeutic product effect incomplete [Unknown]
